FAERS Safety Report 13095555 (Version 1)
Quarter: 2017Q1

REPORT INFORMATION
  Report Type: Spontaneous
  Country: CA (occurrence: CA)
  Receive Date: 20170108
  Receipt Date: 20170108
  Transmission Date: 20170428
  Serious: Yes (Other)
  Sender: FDA-Public Use
  Company Number: CA-ROCHE-1875132

PATIENT
  Sex: Female

DRUGS (34)
  1. ORENCIA [Suspect]
     Active Substance: ABATACEPT
     Indication: PRODUCT USED FOR UNKNOWN INDICATION
     Route: 065
  2. CORTISONE [Concomitant]
     Active Substance: CORTISONE\HYDROCORTISONE
  3. HYDROMORPHONE [Concomitant]
     Active Substance: HYDROMORPHONE
  4. LASIX [Concomitant]
     Active Substance: FUROSEMIDE
  5. OXYNEO [Concomitant]
     Active Substance: OXYCODONE
  6. RESTASIS [Concomitant]
     Active Substance: CYCLOSPORINE
  7. PLAQUENIL [Suspect]
     Active Substance: HYDROXYCHLOROQUINE SULFATE
     Indication: PRODUCT USED FOR UNKNOWN INDICATION
     Route: 065
  8. KENALOG (CANADA) [Concomitant]
  9. ARAVA [Suspect]
     Active Substance: LEFLUNOMIDE
     Indication: RHEUMATOID ARTHRITIS
     Route: 065
  10. HUMIRA [Suspect]
     Active Substance: ADALIMUMAB
     Indication: PRODUCT USED FOR UNKNOWN INDICATION
     Route: 065
  11. LOPERAMIDE [Concomitant]
     Active Substance: LOPERAMIDE
  12. SYNTHROID [Concomitant]
     Active Substance: LEVOTHYROXINE SODIUM
  13. TRIMETHOPRIM. [Concomitant]
     Active Substance: TRIMETHOPRIM
  14. VAGIFEM [Concomitant]
     Active Substance: ESTRADIOL
  15. CODEINE [Concomitant]
     Active Substance: CODEINE
  16. KINERET [Concomitant]
     Active Substance: ANAKINRA
  17. RITUXAN [Concomitant]
     Active Substance: RITUXIMAB
     Route: 065
  18. ACTEMRA [Suspect]
     Active Substance: TOCILIZUMAB
     Indication: PRODUCT USED FOR UNKNOWN INDICATION
     Route: 065
  19. METHOTREXATE SODIUM. [Suspect]
     Active Substance: METHOTREXATE SODIUM
     Indication: PRODUCT USED FOR UNKNOWN INDICATION
     Route: 065
  20. REMICADE [Suspect]
     Active Substance: INFLIXIMAB
     Indication: PRODUCT USED FOR UNKNOWN INDICATION
     Route: 065
  21. ACETAMINOPHEN. [Concomitant]
     Active Substance: ACETAMINOPHEN
  22. NORFLEX [Concomitant]
     Active Substance: ORPHENADRINE CITRATE
  23. DILAUDID [Concomitant]
     Active Substance: HYDROMORPHONE HYDROCHLORIDE
  24. KADIAN [Concomitant]
     Active Substance: MORPHINE SULFATE
  25. OMNARIS [Concomitant]
     Active Substance: CICLESONIDE
  26. ATIVAN [Concomitant]
     Active Substance: LORAZEPAM
  27. ENABLEX [Concomitant]
     Active Substance: DARIFENACIN HYDROBROMIDE
  28. ENBREL [Suspect]
     Active Substance: ETANERCEPT
     Indication: RHEUMATOID ARTHRITIS
     Route: 065
  29. SODIUM AUROTHIOMALATE [Suspect]
     Active Substance: GOLD SODIUM THIOMALATE
     Indication: PRODUCT USED FOR UNKNOWN INDICATION
     Route: 065
  30. XELJANZ [Suspect]
     Active Substance: TOFACITINIB CITRATE
     Indication: PRODUCT USED FOR UNKNOWN INDICATION
     Route: 065
  31. BENADRYL + DYCLONE MOUTHRINSE [Concomitant]
  32. DEXAMETHASONE. [Concomitant]
     Active Substance: DEXAMETHASONE
  33. PANTOLOC [Concomitant]
     Active Substance: PANTOPRAZOLE SODIUM
  34. URISPAS [Concomitant]
     Active Substance: FLAVOXATE HYDROCHLORIDE

REACTIONS (12)
  - Infection [Unknown]
  - Joint swelling [Unknown]
  - Herpes zoster [Unknown]
  - Synovitis [Unknown]
  - Blood cholesterol increased [Unknown]
  - Liver function test abnormal [Unknown]
  - Anaemia [Unknown]
  - Soft tissue disorder [Unknown]
  - Peripheral swelling [Unknown]
  - Fibromyalgia [Unknown]
  - Arthritis [Unknown]
  - Leukopenia [Unknown]
